FAERS Safety Report 20221217 (Version 1)
Quarter: 2021Q4

REPORT INFORMATION
  Report Type: Spontaneous
  Country: FR (occurrence: FR)
  Receive Date: 20211223
  Receipt Date: 20211223
  Transmission Date: 20220303
  Serious: Yes (Hospitalization)
  Sender: FDA-Public Use
  Company Number: None

PATIENT
  Age: 68 Year
  Sex: Female
  Weight: 47 kg

DRUGS (6)
  1. AMOXICILLIN [Suspect]
     Active Substance: AMOXICILLIN
     Indication: Pneumonia bacterial
     Dosage: 3 GRAM DAILY; 1G 3X / D
     Route: 048
     Dates: start: 20210912, end: 20211012
  2. CLAVULANIC ACID [Suspect]
     Active Substance: CLAVULANIC ACID
     Indication: Pneumonia bacterial
     Dosage: 600 MILLIGRAM DAILY; 200MG 3X / D
     Route: 048
     Dates: start: 20210912, end: 20211012
  3. FENTANYL [Concomitant]
     Active Substance: FENTANYL
     Dosage: DUROGESIC 12 MICROGRAMS / HOUR (2.1 MG / 5.25 CM ), TRANSDERMAL PATCH
     Dates: end: 20210919
  4. BISOPROLOL [Concomitant]
     Active Substance: BISOPROLOL
     Dosage: BISOPROLOL (ACID FUMARATE)
  5. ASPIRIN [Concomitant]
     Active Substance: ASPIRIN
  6. ATORVASTATIN [Concomitant]
     Active Substance: ATORVASTATIN

REACTIONS (1)
  - Mixed liver injury [Recovering/Resolving]

NARRATIVE: CASE EVENT DATE: 20211014
